FAERS Safety Report 14620187 (Version 4)
Quarter: 2018Q2

REPORT INFORMATION
  Report Type: Report from Study
  Country: NZ (occurrence: NZ)
  Receive Date: 20180309
  Receipt Date: 20180430
  Transmission Date: 20180711
  Serious: Yes (Hospitalization)
  Sender: FDA-Public Use
  Company Number: NZ-MYLANLABS-2016M1037927

PATIENT
  Age: 26 Year
  Sex: Male

DRUGS (3)
  1. CLOZARIL [Suspect]
     Active Substance: CLOZAPINE
     Dosage: UNK
     Route: 048
     Dates: start: 20180109
  2. CLOZARIL [Suspect]
     Active Substance: CLOZAPINE
     Indication: SCHIZOPHRENIA
     Dosage: UNK
     Route: 048
     Dates: start: 20110809
  3. CLOZARIL [Suspect]
     Active Substance: CLOZAPINE
     Dosage: 350 MG, QD
     Route: 048
     Dates: start: 20120417, end: 20160707

REACTIONS (10)
  - Troponin increased [Unknown]
  - Cardiac disorder [Unknown]
  - Mean cell haemoglobin concentration decreased [Not Recovered/Not Resolved]
  - Eosinophil count increased [Unknown]
  - Neutrophil count increased [Not Recovered/Not Resolved]
  - Viral infection [Unknown]
  - White blood cell count increased [Not Recovered/Not Resolved]
  - Monocyte count increased [Recovering/Resolving]
  - Mean cell haemoglobin decreased [Unknown]
  - Granulocytes abnormal [Not Recovered/Not Resolved]

NARRATIVE: CASE EVENT DATE: 20160707
